FAERS Safety Report 7547399-5 (Version None)
Quarter: 2011Q2

REPORT INFORMATION
  Report Type: 
  Country: None (occurrence: None)
  Receive Date: 20110614
  Receipt Date: 20110601
  Transmission Date: 20111010
  Serious: Yes (Hospitalization)
  Sender: FDA-Public Use
  Company Number: FR-UCBSA-034415

PATIENT
  Sex: Female

DRUGS (9)
  1. ACETAMINOPHEN [Concomitant]
  2. ASPIRIN [Concomitant]
  3. IBUPROFEN [Concomitant]
  4. KEPPRA [Suspect]
     Route: 048
     Dates: start: 20100301, end: 20110501
  5. MADOPAR [Concomitant]
  6. PERINDOPRIL ERBUMINE [Concomitant]
  7. ALDACTONE [Concomitant]
  8. BISOPROLOL FUMARATE [Concomitant]
  9. LASIX [Concomitant]

REACTIONS (2)
  - COMA [None]
  - BLOOD CREATININE ABNORMAL [None]
